FAERS Safety Report 8489374-2 (Version None)
Quarter: 2012Q3

REPORT INFORMATION
  Report Type: 
  Country: None (occurrence: None)
  Receive Date: 20120705
  Receipt Date: 20120625
  Transmission Date: 20120928
  Serious: Yes (Hospitalization, Other)
  Sender: FDA-Public Use
  Company Number: US-ASTRAZENECA-2011SE65397

PATIENT
  Age: 59 Year
  Sex: Female
  Weight: 69.4 kg

DRUGS (40)
  1. NEXIUM [Suspect]
     Indication: GASTROOESOPHAGEAL REFLUX PROPHYLAXIS
     Route: 048
     Dates: start: 20010101, end: 20050101
  2. NEXIUM [Suspect]
     Route: 048
     Dates: start: 20050101, end: 20110101
  3. NEXIUM [Suspect]
     Indication: GASTROOESOPHAGEAL REFLUX DISEASE
     Route: 048
     Dates: start: 20010101, end: 20050101
  4. NEXIUM [Suspect]
     Route: 048
     Dates: start: 20050101, end: 20110101
  5. VALIUM [Concomitant]
     Indication: FEELING OF RELAXATION
     Route: 048
  6. AMITRIPTYLINE HCL [Concomitant]
     Route: 048
  7. HEART PILL [Concomitant]
     Indication: CARDIAC DISORDER
  8. NEXIUM [Suspect]
     Route: 048
     Dates: start: 20110101, end: 20120201
  9. ZANTAC [Concomitant]
  10. PEPSIDASE [Concomitant]
  11. FLOVENT [Concomitant]
     Indication: ASTHMA
     Route: 055
  12. NEXIUM [Suspect]
     Route: 048
     Dates: start: 20110101, end: 20120201
  13. MYLANTA [Suspect]
     Route: 065
  14. SINGULAIR [Concomitant]
     Indication: CHRONIC OBSTRUCTIVE PULMONARY DISEASE
     Route: 048
  15. 28 DIFFERENT MEDICATIONS [Concomitant]
  16. NEXIUM [Suspect]
     Route: 048
     Dates: start: 20050101, end: 20110101
  17. NEXIUM [Suspect]
     Route: 048
     Dates: start: 20050101, end: 20110101
  18. PRILOSEC OTC [Suspect]
     Indication: GASTROOESOPHAGEAL REFLUX DISEASE
     Dosage: DAILY
     Route: 048
  19. OXYCODONE HCL [Concomitant]
     Indication: PAIN
     Route: 048
  20. NEXIUM [Suspect]
     Route: 048
     Dates: start: 20110101, end: 20120201
  21. PRILOSEC [Suspect]
     Indication: PROPHYLAXIS AGAINST GASTROINTESTINAL ULCER
     Route: 048
  22. COMBIVENT [Concomitant]
     Indication: CHRONIC OBSTRUCTIVE PULMONARY DISEASE
     Route: 055
  23. SINGULAIR [Concomitant]
     Indication: ASTHMA
     Route: 048
  24. EFFEXOR [Concomitant]
     Indication: HYPERTENSION
     Route: 048
  25. NEXIUM [Suspect]
     Route: 048
     Dates: start: 20010101, end: 20050101
  26. NEXIUM [Suspect]
     Indication: ABDOMINAL PAIN UPPER
     Route: 048
     Dates: start: 20010101, end: 20050101
  27. NEXIUM [Suspect]
     Indication: PROPHYLAXIS AGAINST GASTROINTESTINAL ULCER
     Route: 048
     Dates: start: 20010101, end: 20050101
  28. NEXIUM [Suspect]
     Route: 048
     Dates: start: 20110101, end: 20120201
  29. NEXIUM [Suspect]
     Route: 048
     Dates: start: 20110101, end: 20120201
  30. MUSCLE RELAXERS [Suspect]
     Route: 065
  31. STEROID [Concomitant]
  32. IBUPROFEN [Concomitant]
  33. FENTANYL [Concomitant]
     Indication: PAIN
     Route: 061
  34. COMBIVENT [Concomitant]
     Indication: ASTHMA
     Route: 055
  35. SPIRIVA [Concomitant]
     Indication: ASTHMA
     Route: 055
  36. CATAPRES [Concomitant]
     Indication: HYPERTENSION
     Dosage: FREQUENCY WEEK
     Route: 061
  37. NEXIUM [Suspect]
     Route: 048
     Dates: start: 20050101, end: 20110101
  38. OTHER PAIN MEDICATION [Concomitant]
  39. FLOVENT [Concomitant]
     Indication: CHRONIC OBSTRUCTIVE PULMONARY DISEASE
     Route: 055
  40. SPIRIVA [Concomitant]
     Indication: CHRONIC OBSTRUCTIVE PULMONARY DISEASE
     Route: 055

REACTIONS (33)
  - HIP FRACTURE [None]
  - CARDIAC NEOPLASM UNSPECIFIED [None]
  - GASTRIC DISORDER [None]
  - ABDOMINAL PAIN UPPER [None]
  - HEADACHE [None]
  - CONSTIPATION [None]
  - ASTHMA [None]
  - ULCER HAEMORRHAGE [None]
  - HYPERTENSION [None]
  - DIARRHOEA [None]
  - OEDEMA PERIPHERAL [None]
  - CHRONIC OBSTRUCTIVE PULMONARY DISEASE [None]
  - SPINAL FRACTURE [None]
  - MALAISE [None]
  - INSOMNIA [None]
  - CIRCUMSTANCE OR INFORMATION CAPABLE OF LEADING TO MEDICATION ERROR [None]
  - OFF LABEL USE [None]
  - CARDIAC FAILURE CONGESTIVE [None]
  - BACK DISORDER [None]
  - GASTROOESOPHAGEAL REFLUX DISEASE [None]
  - DYSPEPSIA [None]
  - DRUG INEFFECTIVE [None]
  - CARDIAC DISORDER [None]
  - MUSCULOSKELETAL CHEST PAIN [None]
  - GASTROINTESTINAL DISORDER [None]
  - HAEMATEMESIS [None]
  - RESPIRATORY DISORDER [None]
  - PAIN [None]
  - MIGRAINE [None]
  - VOMITING [None]
  - DRUG DOSE OMISSION [None]
  - PNEUMONIA [None]
  - GAIT DISTURBANCE [None]
